FAERS Safety Report 11685940 (Version 2)
Quarter: 2015Q4

REPORT INFORMATION
  Report Type: Spontaneous
  Country: ES (occurrence: ES)
  Receive Date: 20151030
  Receipt Date: 20151123
  Transmission Date: 20160304
  Serious: Yes (Other)
  Sender: FDA-Public Use
  Company Number: ES-BIOGENIDEC-2015BI141737

PATIENT
  Age: 30 Year
  Sex: Male

DRUGS (6)
  1. KEPPRA [Concomitant]
     Active Substance: LEVETIRACETAM
  2. SECALIP [Concomitant]
     Active Substance: FENOFIBRATE
  3. DEPAKINE CHRONO [Concomitant]
     Active Substance: VALPROATE SODIUM
  4. ALLOPURINOL. [Concomitant]
     Active Substance: ALLOPURINOL
  5. HIDROFEROL [Concomitant]
     Active Substance: CALCIFEDIOL
  6. TECFIDERA [Suspect]
     Active Substance: DIMETHYL FUMARATE
     Indication: MULTIPLE SCLEROSIS
     Route: 048
     Dates: start: 20140901, end: 20151019

REACTIONS (2)
  - Progressive multifocal leukoencephalopathy [Not Recovered/Not Resolved]
  - Glioneuronal tumour [Not Recovered/Not Resolved]
